FAERS Safety Report 6742536-4 (Version None)
Quarter: 2010Q2

REPORT INFORMATION
  Report Type: 
  Country: None (occurrence: None)
  Receive Date: 20100524
  Receipt Date: 20090616
  Transmission Date: 20101027
  Serious: Yes (Hospitalization)
  Sender: FDA-Public Use
  Company Number: 2009BH010290

PATIENT
  Age: 64 Year
  Sex: Female
  Weight: 72.2 kg

DRUGS (14)
  1. CYTOXAN [Suspect]
     Indication: BREAST CANCER
     Dosage: 1140 MG;EVERY 3 WK;IV
     Dates: start: 20090527, end: 20090527
  2. ADRIAMYCIN PFS [Suspect]
     Indication: BREAST CANCER
     Dosage: 114 MG;EVERY 3 WK;IV
     Dates: start: 20090527, end: 20090527
  3. ASPIRIN [Concomitant]
  4. ATORVASTATIN CALCIUM [Concomitant]
  5. PLAQUENIL [Concomitant]
  6. AMITRIPTYLINE [Concomitant]
  7. PANTOPRAZOLE SODIUM [Concomitant]
  8. PAXIL [Concomitant]
  9. VALIUM [Concomitant]
  10. CALCIUM WITH VITAMIN D [Concomitant]
  11. LACTULOSE [Concomitant]
  12. SELENIUM [Concomitant]
  13. MAGNESIUM [Concomitant]
  14. MOBIC [Concomitant]

REACTIONS (1)
  - FEBRILE NEUTROPENIA [None]
